FAERS Safety Report 6579841-0 (Version None)
Quarter: 2010Q1

REPORT INFORMATION
  Report Type: 
  Country: None (occurrence: None)
  Receive Date: 20100212
  Receipt Date: 20100203
  Transmission Date: 20100710
  Serious: Yes (Other)
  Sender: FDA-Public Use
  Company Number: JP-EISAI INC.-E3810-03505-SPO-JP

PATIENT
  Age: 61 Year
  Sex: Female

DRUGS (3)
  1. PARIET (RABEPRAZOLE) [Suspect]
     Route: 048
     Dates: start: 20080419
  2. ASPIRIN [Concomitant]
     Indication: STENT PLACEMENT
     Route: 048
     Dates: start: 20080419
  3. PLAVIX [Concomitant]
     Indication: STENT PLACEMENT
     Route: 048
     Dates: start: 20080419

REACTIONS (1)
  - ACUTE CORONARY SYNDROME [None]
